FAERS Safety Report 9458237 (Version 3)
Quarter: 2013Q3

REPORT INFORMATION
  Report Type: Spontaneous
  Country: FR (occurrence: None)
  Receive Date: 20130812
  Receipt Date: 20130920
  Transmission Date: 20140515
  Serious: Yes (Other)
  Sender: FDA-Public Use
  Company Number: 2013227158

PATIENT
  Age: 86 Year
  Sex: Female

DRUGS (10)
  1. FRAGMINE [Suspect]
     Route: 058
     Dates: start: 20130714, end: 20130717
  2. XARELTO [Suspect]
     Route: 048
     Dates: start: 20130717, end: 20130724
  3. CIPROFLOXACIN [Suspect]
     Indication: URINARY TRACT INFECTION
     Route: 048
     Dates: start: 20130714, end: 20130724
  4. ATACAND [Suspect]
     Route: 048
  5. PRAVASTATIN [Suspect]
     Route: 048
  6. IMOVANE [Suspect]
     Route: 048
  7. ALPRAZOLAM [Suspect]
     Route: 048
  8. CARDENSIEL [Suspect]
     Route: 048
     Dates: start: 20130717
  9. LASILIX [Suspect]
     Route: 048
     Dates: end: 20130724
  10. AMIODARONE [Suspect]
     Route: 048
     Dates: start: 20130714

REACTIONS (9)
  - Blood creatinine increased [None]
  - Glomerular filtration rate decreased [None]
  - Blood sodium decreased [None]
  - Blood urea increased [None]
  - Lymphocyte count decreased [None]
  - Platelet count increased [None]
  - Renal failure acute [None]
  - Thrombocytopenia [None]
  - Pulmonary embolism [None]
